FAERS Safety Report 7608677-4 (Version None)
Quarter: 2011Q3

REPORT INFORMATION
  Report Type: 
  Country: None (occurrence: None)
  Receive Date: 20110713
  Receipt Date: 20110713
  Transmission Date: 20111222
  Serious: Yes (Life-Threatening, Hospitalization)
  Sender: FDA-Public Use
  Company Number: None

PATIENT
  Sex: Male
  Weight: 76.2 kg

DRUGS (3)
  1. AMLODIPINE [Suspect]
     Indication: HYPERTENSION
     Dosage: ONE PILL DAILY PO
  2. SIMVASTATIN [Suspect]
     Indication: HYPERLIPIDAEMIA
     Dosage: ONE PILL DAILY PO 1 MO 80 MG , 40 MG 1 YR
     Route: 048
  3. SIMVASTATIN [Suspect]
     Indication: HYPERLIPIDAEMIA
     Dosage: ONE PILL DAILY PO 1 MO 80 MG , 40 MG 1 YR
     Route: 048

REACTIONS (4)
  - DIALYSIS [None]
  - HYPERKALAEMIA [None]
  - RHABDOMYOLYSIS [None]
  - RENAL FAILURE ACUTE [None]
